FAERS Safety Report 9789684 (Version 1)
Quarter: 2013Q4

REPORT INFORMATION
  Report Type: Spontaneous
  Country: US (occurrence: None)
  Receive Date: 20131227
  Receipt Date: 20131227
  Transmission Date: 20140711
  Serious: Yes (Death, Other)
  Sender: FDA-Public Use
  Company Number: ADR-2013-02330

PATIENT
  Age: 92 Year
  Sex: Female

DRUGS (1)
  1. BACLOFEN [Suspect]
     Indication: PAIN

REACTIONS (2)
  - Cardiac disorder [None]
  - Condition aggravated [None]
